FAERS Safety Report 8248431-6 (Version None)
Quarter: 2012Q1

REPORT INFORMATION
  Report Type: 
  Country: None (occurrence: None)
  Receive Date: 20120330
  Receipt Date: 20120323
  Transmission Date: 20120608
  Serious: Yes (Other)
  Sender: FDA-Public Use
  Company Number: US-ASTRAZENECA-2012SE15172

PATIENT
  Age: 21926 Day
  Sex: Female
  Weight: 91.2 kg

DRUGS (5)
  1. GLIPIZIDE [Concomitant]
  2. THYROID TAB [Concomitant]
  3. FASLODEX [Suspect]
     Indication: BREAST CANCER
     Dosage: 500 MG D1/15/29
     Route: 030
     Dates: start: 20111201, end: 20111229
  4. DECADRON [Concomitant]
     Indication: METASTASES TO CENTRAL NERVOUS SYSTEM
     Dates: start: 20111021, end: 20120103
  5. FLUCONAZOLE [Concomitant]

REACTIONS (2)
  - INJECTION SITE ERYTHEMA [None]
  - CELLULITIS [None]
